FAERS Safety Report 8934678 (Version 3)
Quarter: 2012Q4

REPORT INFORMATION
  Report Type: 
  Country: IL (occurrence: IL)
  Receive Date: 20121129
  Receipt Date: 20121213
  Transmission Date: 20130627
  Serious: Yes (Hospitalization, Other)
  Sender: FDA-Public Use
  Company Number: IL-B.I. PHARMACEUTICALS,INC./RIDGEFIELD-2012-AP-01027RI

PATIENT
  Age: 73 Year
  Sex: Female

DRUGS (5)
  1. PRADAXA [Suspect]
     Indication: ATRIAL FIBRILLATION
     Dosage: 300 mg
     Route: 048
     Dates: end: 20121120
  2. PRADAXA [Suspect]
     Indication: CEREBROVASCULAR ACCIDENT PROPHYLAXIS
  3. VENOFER [Concomitant]
     Indication: IRON DEFICIENCY
     Dosage: 28.5714 mg
     Route: 042
     Dates: start: 20121011
  4. FUSID [Concomitant]
     Indication: ACUTE PULMONARY OEDEMA
     Dosage: 11.4286 mg
     Route: 042
     Dates: start: 20121018
  5. CONTROLOC [Concomitant]
     Indication: GASTRITIS EROSIVE
     Dosage: 20 mg

REACTIONS (7)
  - Rectal haemorrhage [Recovered/Resolved]
  - Dyspnoea [Unknown]
  - Cyanosis [Recovered/Resolved]
  - Epistaxis [Recovered/Resolved]
  - Acute pulmonary oedema [Unknown]
  - Cardiac disorder [Unknown]
  - Cardiac failure [Unknown]
